FAERS Safety Report 12387285 (Version 2)
Quarter: 2017Q1

REPORT INFORMATION
  Report Type: Spontaneous
  Country: BR (occurrence: BR)
  Receive Date: 20160519
  Receipt Date: 20170210
  Transmission Date: 20170428
  Serious: Yes (Other)
  Sender: FDA-Public Use
  Company Number: BR-BIOMARINAP-BR-2016-109235

PATIENT
  Age: 15 Year
  Sex: Female

DRUGS (1)
  1. NAGLAZYME [Suspect]
     Active Substance: GALSULFASE
     Indication: MUCOPOLYSACCHARIDOSIS VI
     Dosage: 1 MG/KG, QW
     Route: 065

REACTIONS (2)
  - Corneal opacity [Unknown]
  - Foramen magnum stenosis [Unknown]
